FAERS Safety Report 24699028 (Version 1)
Quarter: 2024Q4

REPORT INFORMATION
  Report Type: Spontaneous
  Country: GB (occurrence: GB)
  Receive Date: 20241205
  Receipt Date: 20241205
  Transmission Date: 20250115
  Serious: Yes (Death, Hospitalization, Other)
  Sender: AUROBINDO
  Company Number: GB-MHRA-33890635

PATIENT
  Age: 87 Year
  Sex: Female

DRUGS (1)
  1. RIVAROXABAN [Suspect]
     Active Substance: RIVAROXABAN
     Indication: Deep vein thrombosis
     Dosage: 15 MILLIGRAM, TWO TIMES A DAY (15 MG BD PRESCRIBED)
     Route: 065

REACTIONS (4)
  - Death [Fatal]
  - Anaemia [Unknown]
  - Creatinine renal clearance decreased [Unknown]
  - Melaena [Unknown]

NARRATIVE: CASE EVENT DATE: 20241017
